FAERS Safety Report 21131286 (Version 1)
Quarter: 2022Q3

REPORT INFORMATION
  Report Type: Spontaneous
  Country: US (occurrence: None)
  Receive Date: 20220725
  Receipt Date: 20220725
  Transmission Date: 20221027
  Serious: No
  Sender: FDA-Public Use
  Company Number: None

PATIENT
  Age: 59 Year
  Sex: Female
  Weight: 69.4 kg

DRUGS (1)
  1. PALYNZIQ [Suspect]
     Active Substance: PEGVALIASE-PQPZ
     Indication: Phenylketonuria
     Dosage: FREQUENCY : DAILY;?
     Route: 058
     Dates: start: 20190410

REACTIONS (2)
  - Amino acid level increased [None]
  - Phenylalanine screen negative [None]

NARRATIVE: CASE EVENT DATE: 20220712
